FAERS Safety Report 9199471 (Version 1)
Quarter: 2013Q1

REPORT INFORMATION
  Report Type: Report from Study
  Country: GB (occurrence: GB)
  Receive Date: 20130329
  Receipt Date: 20130329
  Transmission Date: 20140127
  Serious: Yes (Life-Threatening, Hospitalization)
  Sender: FDA-Public Use
  Company Number: GB-GENZYME-CAMP-1002829

PATIENT
  Age: 62 Year
  Sex: Male
  Weight: 58.8 kg

DRUGS (5)
  1. CAMPATH [Suspect]
     Indication: CHRONIC LYMPHOCYTIC LEUKAEMIA
     Dosage: 30 MG, UNK (6 COURSES)
     Route: 065
     Dates: start: 20120501, end: 20120823
  2. CAMPATH [Suspect]
     Dosage: 30 MG, UNK
     Route: 065
     Dates: start: 20130115, end: 20130123
  3. CAMPATH [Suspect]
     Dosage: 30 MG, UNK
     Route: 065
     Dates: start: 20130206
  4. METHYLPREDNISOLONE [Concomitant]
     Indication: PRODUCT USED FOR UNKNOWN INDICATION
     Dosage: 500 MG, 1X/W
     Route: 065
     Dates: start: 20121204
  5. INSULIN [Concomitant]
     Indication: PRODUCT USED FOR UNKNOWN INDICATION
     Dosage: UNK
     Route: 065

REACTIONS (8)
  - Loss of consciousness [Recovered/Resolved]
  - Defaecation urgency [Recovered/Resolved]
  - Defaecation urgency [Recovered/Resolved]
  - Vomiting [Recovered/Resolved]
  - Hypotension [Recovered/Resolved]
  - Vomiting [Recovered/Resolved]
  - Hypotension [Recovered/Resolved]
  - Tachycardia [Recovered/Resolved]
